FAERS Safety Report 20249243 (Version 3)
Quarter: 2022Q1

REPORT INFORMATION
  Report Type: Spontaneous
  Country: JP (occurrence: None)
  Receive Date: 20211229
  Receipt Date: 20220112
  Transmission Date: 20220423
  Serious: Yes (Other)
  Sender: FDA-Public Use
  Company Number: 2021A904335

PATIENT
  Age: 90 Year
  Sex: Male

DRUGS (9)
  1. DAPAGLIFLOZIN [Suspect]
     Active Substance: DAPAGLIFLOZIN
     Indication: Cardiac failure chronic
     Route: 048
     Dates: start: 20211122, end: 20211223
  2. DIGOXIN [Concomitant]
     Active Substance: DIGOXIN
     Dosage: DOSE UNKNOWN
     Route: 065
  3. FEBUXOSTAT [Concomitant]
     Active Substance: FEBUXOSTAT
     Dosage: DOSE UNKNOWN
     Route: 065
  4. DILTIAZEM HYDROCHLORIDE [Concomitant]
     Active Substance: DILTIAZEM HYDROCHLORIDE
     Dosage: DOSE UNKNOWN
     Route: 048
  5. AZILSARTAN KAMEDOXOMIL [Concomitant]
     Active Substance: AZILSARTAN KAMEDOXOMIL
     Dosage: DOSE UNKNOWN
     Route: 065
  6. PILSICAINIDE HYDROCHLORIDE HEMIHYDRATE [Concomitant]
     Active Substance: PILSICAINIDE HYDROCHLORIDE HEMIHYDRATE
     Dosage: DOSE UNKNOWN
     Route: 065
  7. BROTIZOLAM [Concomitant]
     Active Substance: BROTIZOLAM
     Dosage: DOSE UNKNOWN
     Route: 065
  8. MAGNESIUM OXIDE [Concomitant]
     Active Substance: MAGNESIUM OXIDE
     Dosage: DOSE UNKNOWN
     Route: 065
  9. AMLODIPINE [Concomitant]
     Active Substance: AMLODIPINE BESYLATE
     Dosage: DOSE UNKNOWN
     Route: 065

REACTIONS (2)
  - Neoplasm malignant [Unknown]
  - Urine analysis abnormal [Unknown]

NARRATIVE: CASE EVENT DATE: 20211123
